FAERS Safety Report 7209287-3 (Version None)
Quarter: 2011Q1

REPORT INFORMATION
  Report Type: 
  Country: None (occurrence: None)
  Receive Date: 20110104
  Receipt Date: 20101230
  Transmission Date: 20110831
  Serious: Yes (Death)
  Sender: FDA-Public Use
  Company Number: B0691571A

PATIENT
  Sex: Female

DRUGS (9)
  1. DABIGATRAN [Suspect]
     Indication: ARRHYTHMIA
     Dosage: 75MG TWICE PER DAY
     Route: 048
     Dates: start: 20090101, end: 20101115
  2. NEXIUM [Suspect]
     Indication: PRODUCT USED FOR UNKNOWN INDICATION
     Dosage: 20MG PER DAY
     Route: 048
  3. XANAX [Suspect]
     Indication: PRODUCT USED FOR UNKNOWN INDICATION
     Dosage: .25MG PER DAY
     Route: 048
  4. DIFFU K [Suspect]
     Indication: PRODUCT USED FOR UNKNOWN INDICATION
     Dosage: 1UNIT TWICE PER DAY
     Route: 048
     Dates: end: 20101115
  5. TRIATEC [Suspect]
     Indication: PRODUCT USED FOR UNKNOWN INDICATION
     Dosage: 5MG TWICE PER DAY
     Route: 048
  6. DEROXAT [Suspect]
     Indication: PRODUCT USED FOR UNKNOWN INDICATION
     Dosage: 10MG PER DAY
     Route: 048
  7. FORLAX [Suspect]
     Indication: PRODUCT USED FOR UNKNOWN INDICATION
     Dosage: 10G TWICE PER DAY
     Route: 048
  8. CORDARONE [Suspect]
     Indication: PRODUCT USED FOR UNKNOWN INDICATION
     Dosage: 1UNIT PER DAY
     Route: 048
     Dates: end: 20101115
  9. LEVOTHYROX [Suspect]
     Indication: PRODUCT USED FOR UNKNOWN INDICATION
     Dosage: 75MCG PER DAY
     Route: 048

REACTIONS (18)
  - HAEMOGLOBIN DECREASED [None]
  - MYOCARDIAL ISCHAEMIA [None]
  - OVERDOSE [None]
  - HAEMORRHOIDS [None]
  - FAECAL VOMITING [None]
  - CARDIO-RESPIRATORY ARREST [None]
  - GASTROINTESTINAL HAEMORRHAGE [None]
  - COAGULOPATHY [None]
  - BRADYCARDIA [None]
  - RENAL FAILURE ACUTE [None]
  - HYPOVOLAEMIA [None]
  - METABOLIC ACIDOSIS [None]
  - HYPOTENSION [None]
  - INTESTINAL ISCHAEMIA [None]
  - RECTAL HAEMORRHAGE [None]
  - PELVIC PAIN [None]
  - ATRIOVENTRICULAR BLOCK COMPLETE [None]
  - HYPERLACTACIDAEMIA [None]
